FAERS Safety Report 7586221-8 (Version None)
Quarter: 2011Q2

REPORT INFORMATION
  Report Type: 
  Country: None (occurrence: None)
  Receive Date: 20110630
  Receipt Date: 20110630
  Transmission Date: 20111010
  Serious: No
  Sender: FDA-Public Use
  Company Number: None

PATIENT
  Age: 72 Year
  Sex: Male

DRUGS (10)
  1. SENNOSIDES, [Concomitant]
  2. ASPIRIN [Concomitant]
  3. DOCUSATE SODIUM, [Concomitant]
  4. REVLIMID [Suspect]
     Indication: MULTIPLE MYELOMA
     Dosage: REVLIMID 25MG DAILY ORAL X 2 DOSES
     Route: 048
     Dates: start: 20110627
  5. DEXEMETHASONE, [Concomitant]
  6. HYDROCORTISONE [Concomitant]
  7. VICODIN [Concomitant]
  8. FERROUS SULFATE TAB [Concomitant]
  9. MOM, [Concomitant]
  10. PROCHLOROPERAZINE, [Concomitant]

REACTIONS (4)
  - NAUSEA [None]
  - URTICARIA [None]
  - RASH PAPULAR [None]
  - DIZZINESS [None]
